FAERS Safety Report 10505815 (Version 1)
Quarter: 2014Q4

REPORT INFORMATION
  Report Type: Spontaneous
  Country: US (occurrence: US)
  Receive Date: 20141008
  Receipt Date: 20141008
  Transmission Date: 20150528
  Serious: No
  Sender: FDA-Public Use
  Company Number: US-SANOFI-AVENTIS-2013SA093508

PATIENT
  Age: 51 Year
  Sex: Female

DRUGS (3)
  1. IBANDRONIC ACID [Concomitant]
     Active Substance: IBANDRONIC ACID
  2. PREDNISONE. [Suspect]
     Active Substance: PREDNISONE
     Indication: SARCOIDOSIS
     Route: 065
     Dates: start: 201307
  3. ARAVA [Suspect]
     Active Substance: LEFLUNOMIDE
     Route: 065

REACTIONS (8)
  - Renal disorder [Unknown]
  - Irritability [Unknown]
  - Hepatic enzyme increased [Unknown]
  - Blood glucose increased [Unknown]
  - Pain [Unknown]
  - Malaise [Unknown]
  - Drug ineffective [Unknown]
  - Hyperglycaemia [Unknown]
